FAERS Safety Report 6064528-3 (Version None)
Quarter: 2009Q1

REPORT INFORMATION
  Report Type: 
  Country: None (occurrence: None)
  Receive Date: 20090204
  Receipt Date: 20090128
  Transmission Date: 20090719
  Serious: Yes (Hospitalization)
  Sender: FDA-Public Use
  Company Number: A0761406A

PATIENT
  Age: 69 Year
  Sex: Male

DRUGS (4)
  1. ADVAIR DISKUS 100/50 [Suspect]
     Indication: CHRONIC OBSTRUCTIVE PULMONARY DISEASE
     Dosage: 1PUFF TWICE PER DAY
     Route: 055
     Dates: start: 20070101
  2. WATER PILL [Concomitant]
  3. PREDNISONE [Concomitant]
  4. NEBULIZER [Concomitant]

REACTIONS (9)
  - ACCIDENTAL OVERDOSE [None]
  - COUGH [None]
  - DIABETES MELLITUS [None]
  - DYSPNOEA [None]
  - FLUID RETENTION [None]
  - MALAISE [None]
  - PRODUCT QUALITY ISSUE [None]
  - RHINORRHOEA [None]
  - SINUSITIS [None]
